FAERS Safety Report 22943576 (Version 4)
Quarter: 2023Q4

REPORT INFORMATION
  Report Type: Report from Study
  Country: PL (occurrence: None)
  Receive Date: 20230914
  Receipt Date: 20231206
  Transmission Date: 20240109
  Serious: Yes (Hospitalization)
  Sender: FDA-Public Use
  Company Number: PL-ROCHE-3417323

PATIENT
  Age: 45 Year
  Sex: Female
  Weight: 63.8 kg

DRUGS (17)
  1. OBINUTUZUMAB [Suspect]
     Active Substance: OBINUTUZUMAB
     Indication: Systemic lupus erythematosus
     Route: 042
     Dates: start: 20220803
  2. OBINUTUZUMAB [Suspect]
     Active Substance: OBINUTUZUMAB
     Indication: Systemic lupus erythematosus
     Dosage: DOSE CONCENTRATION  4 MG/ML, TOTAL VOLUME PRIOR AE 250 ML AND SAE 500 ML?START DATE OF MOST RECENT D
     Route: 042
     Dates: start: 20230816
  3. CHLOROQUINE PHOSPHATE [Concomitant]
     Active Substance: CHLOROQUINE PHOSPHATE
     Indication: Systemic lupus erythematosus
     Route: 048
     Dates: start: 20110104
  4. PERINDOPRIL [Concomitant]
     Active Substance: PERINDOPRIL
     Indication: Hypertension
     Route: 048
     Dates: start: 20190903
  5. VINES [Concomitant]
     Indication: Contraception
     Route: 048
     Dates: start: 201909
  6. LERNIDUM [Concomitant]
     Indication: Hypertension
     Route: 048
     Dates: start: 20230210
  7. METHYLPREDNISOLONE [Concomitant]
     Active Substance: METHYLPREDNISOLONE
     Indication: Premedication
     Route: 048
     Dates: start: 20110104
  8. METHYLPREDNISOLONE [Concomitant]
     Active Substance: METHYLPREDNISOLONE
     Route: 042
     Dates: start: 20230816, end: 20230816
  9. METHYLPREDNISOLONE [Concomitant]
     Active Substance: METHYLPREDNISOLONE
     Route: 042
     Dates: start: 20230830, end: 20230830
  10. ACETAMINOPHEN [Concomitant]
     Active Substance: ACETAMINOPHEN
     Indication: Premedication
     Route: 048
     Dates: start: 20230816, end: 20230816
  11. ACETAMINOPHEN [Concomitant]
     Active Substance: ACETAMINOPHEN
     Route: 048
     Dates: start: 20230830, end: 20230830
  12. DIPHENHYDRAMINE [Concomitant]
     Active Substance: DIPHENHYDRAMINE
     Indication: Premedication
     Route: 048
     Dates: start: 20230816, end: 20230816
  13. DIPHENHYDRAMINE [Concomitant]
     Active Substance: DIPHENHYDRAMINE
     Route: 048
     Dates: start: 20230830, end: 20230830
  14. EPRATUZUMAB [Concomitant]
     Active Substance: EPRATUZUMAB
     Route: 042
  15. ANIFROLUMAB [Concomitant]
     Active Substance: ANIFROLUMAB
     Dosage: DOSE- 1 UNKNOWN
     Route: 042
  16. BARICITINIB [Concomitant]
     Active Substance: BARICITINIB
     Dosage: DOSE- 1 TABLET
     Route: 048
  17. BISOPROLOL FUMARATE\PERINDOPRIL ARGININE [Concomitant]
     Active Substance: BISOPROLOL FUMARATE\PERINDOPRIL ARGININE
     Indication: Hypertension
     Dates: start: 20230719

REACTIONS (1)
  - Neutropenia [Recovered/Resolved]

NARRATIVE: CASE EVENT DATE: 20230830
